FAERS Safety Report 8395883 (Version 4)
Quarter: 2012Q4

REPORT INFORMATION
  Report Type: 
  Country: US (occurrence: US)
  Receive Date: 20120208
  Receipt Date: 20120917
  Transmission Date: 20130627
  Serious: No
  Sender: FDA-Public Use
  Company Number: US-ASTRAZENECA-2011SE46068

PATIENT
  Age: 61 Year
  Sex: Male

DRUGS (11)
  1. NEXIUM [Suspect]
     Route: 048
  2. NEXIUM [Suspect]
     Dosage: TWO PER DAY
     Route: 048
  3. NEXIUM [Suspect]
     Route: 048
  4. ACCOLATE [Suspect]
     Indication: ASTHMA
     Route: 048
  5. ACCOLATE [Suspect]
     Indication: ASTHMA
     Dosage: TWO PER DAY
     Route: 048
  6. ACCOLATE [Suspect]
     Indication: ASTHMA
     Route: 048
  7. THEOPHYLLINE CR [Concomitant]
  8. ADVAIR DISKUS [Concomitant]
  9. VENTOLIN HAF [Concomitant]
  10. COMBIVENT [Concomitant]
  11. PREDNISONE [Concomitant]
     Indication: ASTHMA

REACTIONS (19)
  - Wheezing [Unknown]
  - Condition aggravated [Unknown]
  - Asthma [Unknown]
  - Multiple allergies [Unknown]
  - Chronic obstructive pulmonary disease [Unknown]
  - Gastrooesophageal reflux disease [Unknown]
  - Pyrexia [Unknown]
  - Dyslipidaemia [Unknown]
  - Productive cough [Unknown]
  - Increased upper airway secretion [Unknown]
  - Night sweats [Unknown]
  - Asthma [Unknown]
  - Chest discomfort [Unknown]
  - Lung disorder [Unknown]
  - Pulmonary congestion [Unknown]
  - Dyspnoea [Unknown]
  - Insomnia [Unknown]
  - Intentional drug misuse [Unknown]
  - Drug ineffective [Unknown]
